FAERS Safety Report 7282409-4 (Version None)
Quarter: 2011Q1

REPORT INFORMATION
  Report Type: 
  Country: None (occurrence: None)
  Receive Date: 20110209
  Receipt Date: 20110201
  Transmission Date: 20110831
  Serious: Yes (Other)
  Sender: FDA-Public Use
  Company Number: JP-ASTELLAS-2011JP000794

PATIENT
  Age: 42 Year
  Sex: Male

DRUGS (5)
  1. BUSULFAN [Concomitant]
     Dosage: 12.8 MG/KG, UNKNOWN/D
     Route: 065
  2. CYCLOPHOSPHAMIDE [Concomitant]
     Dosage: 2000 MG/M2, UNKNOWN/D
     Route: 042
  3. PROGRAF [Suspect]
     Indication: PROPHYLAXIS AGAINST GRAFT VERSUS HOST DISEASE
     Route: 065
  4. FLUDARA [Concomitant]
     Dosage: 180 MG/M2, UNKNOWN/D
     Route: 065
  5. FLUDARA [Concomitant]
     Dosage: 30 MG/M2, UNKNOWN/D
     Route: 042

REACTIONS (3)
  - CHRONIC GRAFT VERSUS HOST DISEASE [None]
  - DRUG INEFFECTIVE [None]
  - PSEUDOMONAL SEPSIS [None]
